FAERS Safety Report 8475109-6 (Version None)
Quarter: 2012Q2

REPORT INFORMATION
  Report Type: 
  Country: None (occurrence: None)
  Receive Date: 20120622
  Receipt Date: 20120611
  Transmission Date: 20120825
  Serious: Yes (Hospitalization, Other)
  Sender: FDA-Public Use
  Company Number: 2012P1040903

PATIENT
  Age: 46 Year
  Sex: Male

DRUGS (6)
  1. ACETAMINOPHEN AND TRAMADOL HCL [Concomitant]
  2. PETHIDINE HCL [Concomitant]
  3. MORPHINE [Suspect]
     Indication: PAIN
     Dosage: ;ED 0.3 MG;X1;INTH
     Route: 037
  4. PREGABALIN [Concomitant]
  5. IMIPRAMINE HCL [Concomitant]
  6. DIVALPROATE [Concomitant]

REACTIONS (7)
  - PNEUMONIA ASPIRATION [None]
  - RESPIRATORY DEPRESSION [None]
  - DYSARTHRIA [None]
  - UNRESPONSIVE TO STIMULI [None]
  - BLOOD PRESSURE DECREASED [None]
  - SOMNOLENCE [None]
  - SEDATION [None]
